FAERS Safety Report 8884351 (Version 1)
Quarter: 2012Q4

REPORT INFORMATION
  Report Type: 
  Country: US (occurrence: US)
  Receive Date: 20121102
  Receipt Date: 20121102
  Transmission Date: 20130627
  Serious: No
  Sender: FDA-Public Use
  Company Number: US-ASTRAZENECA-2012SE21896

PATIENT
  Age: 80 Year
  Sex: Female
  Weight: 54.4 kg

DRUGS (1)
  1. CRESTOR [Suspect]
     Indication: BLOOD CHOLESTEROL ABNORMAL
     Route: 048
     Dates: start: 2010, end: 2012

REACTIONS (4)
  - Neck pain [Unknown]
  - Tendonitis [Unknown]
  - Constipation [Unknown]
  - Myalgia [Unknown]
